FAERS Safety Report 21356208 (Version 1)
Quarter: 2022Q3

REPORT INFORMATION
  Report Type: Spontaneous
  Country: US (occurrence: US)
  Receive Date: 20220920
  Receipt Date: 20220920
  Transmission Date: 20221027
  Serious: Yes (Other)
  Sender: FDA-Public Use
  Company Number: US-GUERBET-US-20220083

PATIENT
  Age: 77 Year
  Sex: Male

DRUGS (4)
  1. LIPIODOL [Suspect]
     Active Substance: ETHIODIZED OIL
     Indication: Lumbar artery embolisation
     Route: 013
  2. LIPIODOL [Suspect]
     Active Substance: ETHIODIZED OIL
     Route: 013
  3. NBCA glue [Concomitant]
     Indication: Lumbar artery embolisation
     Route: 013
  4. NBCA glue [Concomitant]
     Route: 013

REACTIONS (2)
  - Aortic aneurysm [Recovered/Resolved]
  - Drug ineffective for unapproved indication [Recovered/Resolved]
